FAERS Safety Report 10505116 (Version 2)
Quarter: 2014Q4

REPORT INFORMATION
  Report Type: Report from Study
  Country: CA (occurrence: CA)
  Receive Date: 20141008
  Receipt Date: 20141008
  Transmission Date: 20150528
  Serious: Yes (Other)
  Sender: FDA-Public Use
  Company Number: CA-ABBVIE-14K-028-1290373-00

PATIENT
  Sex: Female
  Weight: 71.73 kg

DRUGS (5)
  1. HUMIRA [Suspect]
     Active Substance: ADALIMUMAB
     Route: 058
     Dates: start: 2014
  2. HYDROXYCHLOROQUINE SULFATE. [Concomitant]
     Active Substance: HYDROXYCHLOROQUINE SULFATE
     Indication: ARTHRITIS
     Route: 048
  3. SULFASALAZINE. [Concomitant]
     Active Substance: SULFASALAZINE
     Indication: ARTHRITIS
     Route: 048
  4. QUINAPRIL HYDROCHLORIDE. [Concomitant]
     Active Substance: QUINAPRIL HYDROCHLORIDE
     Indication: BLOOD PRESSURE
     Route: 048
  5. HUMIRA [Suspect]
     Active Substance: ADALIMUMAB
     Indication: RHEUMATOID ARTHRITIS
     Route: 058
     Dates: start: 20050627, end: 20140911

REACTIONS (1)
  - Ovarian cyst [Not Recovered/Not Resolved]
